FAERS Safety Report 9684741 (Version 4)
Quarter: 2015Q2

REPORT INFORMATION
  Report Type: Report from Study
  Country: AU (occurrence: AU)
  Receive Date: 20131112
  Receipt Date: 20150609
  Transmission Date: 20150821
  Serious: Yes (Hospitalization, Other)
  Sender: FDA-Public Use
  Company Number: AU-ROCHE-1302805

PATIENT
  Age: 58 Year
  Sex: Male
  Weight: 114 kg

DRUGS (20)
  1. OMALIZUMAB [Suspect]
     Active Substance: OMALIZUMAB
     Route: 058
     Dates: start: 20120927
  2. OMALIZUMAB [Suspect]
     Active Substance: OMALIZUMAB
     Route: 058
  3. SYMBICORT [Concomitant]
     Active Substance: BUDESONIDE\FORMOTEROL FUMARATE DIHYDRATE
     Dosage: DOSE: 400/12
     Route: 065
     Dates: start: 20050718, end: 20130513
  4. NORVASC [Concomitant]
     Active Substance: AMLODIPINE BESYLATE
     Dosage: UNKNOWN DOSE STARTED ON AN UNKNOWN DATE.
     Route: 065
  5. OMALIZUMAB [Suspect]
     Active Substance: OMALIZUMAB
     Route: 058
     Dates: start: 20130513
  6. AVAPRO HCT [Concomitant]
     Active Substance: HYDROCHLOROTHIAZIDE\IRBESARTAN
     Dosage: DOSE: 300/25
     Route: 065
     Dates: start: 20070101, end: 20130513
  7. LIPITOR [Concomitant]
     Active Substance: ATORVASTATIN CALCIUM
     Dosage: UNKNOWN DOSE STARTED ON AN UNKNOWN DATE.
     Route: 065
  8. PHYSIOTENS [Concomitant]
     Active Substance: MOXONIDINE
     Dosage: UNKNOWN DOSE STARTED ON AN UNKNOWN DATE.
     Route: 065
  9. AVAPRO HCT [Concomitant]
     Active Substance: HYDROCHLOROTHIAZIDE\IRBESARTAN
     Dosage: DOSE: 300/25 STARTED ON AN UNKNOWN DATE.
     Route: 065
  10. LIPITOR [Concomitant]
     Active Substance: ATORVASTATIN CALCIUM
     Route: 065
     Dates: start: 20110101, end: 20130513
  11. PHYSIOTENS [Concomitant]
     Active Substance: MOXONIDINE
     Route: 065
     Dates: start: 20100101, end: 20130513
  12. OMALIZUMAB [Suspect]
     Active Substance: OMALIZUMAB
     Route: 058
     Dates: start: 20120202
  13. SYMBICORT [Concomitant]
     Active Substance: BUDESONIDE\FORMOTEROL FUMARATE DIHYDRATE
     Dosage: DOSE: 400/12 STARTED ON AN UNKNOWN DATE
     Route: 065
  14. PANADOL [Concomitant]
     Active Substance: ACETAMINOPHEN
     Route: 065
     Dates: start: 20100101, end: 20130513
  15. OMALIZUMAB [Suspect]
     Active Substance: OMALIZUMAB
     Route: 058
     Dates: start: 20130426
  16. FISH OIL CONCENTRATE [Concomitant]
     Dosage: UNKNOWN DOSE STARTED ON AN UNKNOWN DATE.
     Route: 065
  17. NORVASC [Concomitant]
     Active Substance: AMLODIPINE BESYLATE
     Route: 065
     Dates: start: 20100101, end: 20130513
  18. PANADOL [Concomitant]
     Active Substance: ACETAMINOPHEN
     Dosage: UNKNOWN DOSE STARTED ON AN UNKNOWN DATE.
     Route: 065
  19. OMALIZUMAB [Suspect]
     Active Substance: OMALIZUMAB
     Indication: ASTHMA
     Route: 058
     Dates: start: 20100101
  20. FISH OIL CONCENTRATE [Concomitant]
     Route: 065
     Dates: start: 20110101, end: 20130513

REACTIONS (6)
  - Asthma [Recovering/Resolving]
  - Swelling face [Recovered/Resolved]
  - Rash macular [Recovered/Resolved]
  - Asthma [Recovered/Resolved]
  - Respiratory tract infection viral [Unknown]
  - Dyspnoea [Recovered/Resolved]

NARRATIVE: CASE EVENT DATE: 20120202
